FAERS Safety Report 5378197-9 (Version None)
Quarter: 2007Q3

REPORT INFORMATION
  Report Type: 
  Country: None (occurrence: None)
  Receive Date: 20070705
  Receipt Date: 20070625
  Transmission Date: 20080115
  Serious: Yes (Hospitalization)
  Sender: FDA-Public Use
  Company Number: US-JNJFOC-20070606345

PATIENT
  Sex: Male
  Weight: 117.94 kg

DRUGS (10)
  1. DURAGESIC-100 [Suspect]
     Indication: PAIN
     Route: 062
  2. CATAPRES [Concomitant]
     Route: 062
  3. LASIX [Concomitant]
     Indication: SWELLING
     Route: 048
  4. VITAMIN B-12 [Concomitant]
     Indication: DRUG USE FOR UNKNOWN INDICATION
     Route: 048
  5. ATENOLOL [Concomitant]
     Indication: DRUG USE FOR UNKNOWN INDICATION
     Route: 048
  6. NEXIUM [Concomitant]
     Indication: GASTRIC DISORDER
     Route: 048
  7. DULCOLAX [Concomitant]
     Indication: ABNORMAL FAECES
     Route: 048
  8. BECONASE [Concomitant]
     Indication: ASTHMA
     Dosage: AS NEEDED
     Route: 055
  9. ALLEGRA [Concomitant]
     Indication: DRUG USE FOR UNKNOWN INDICATION
     Route: 048
  10. NITROGLYCERIN [Concomitant]
     Indication: DRUG USE FOR UNKNOWN INDICATION
     Route: 048

REACTIONS (7)
  - BLOOD CHOLESTEROL INCREASED [None]
  - DIABETIC NEUROPATHY [None]
  - HYPOAESTHESIA [None]
  - INCORRECT DRUG ADMINISTRATION DURATION [None]
  - RESTLESS LEGS SYNDROME [None]
  - SLEEP DISORDER [None]
  - TRANSIENT ISCHAEMIC ATTACK [None]
